FAERS Safety Report 25435866 (Version 1)
Quarter: 2025Q2

REPORT INFORMATION
  Report Type: Spontaneous
  Country: KR (occurrence: KR)
  Receive Date: 20250613
  Receipt Date: 20250613
  Transmission Date: 20250716
  Serious: Yes (Life-Threatening, Hospitalization)
  Sender: NOVARTIS
  Company Number: KR-002147023-NVSC2025KR094465

PATIENT
  Age: 42 Year
  Sex: Male

DRUGS (4)
  1. PAZOPANIB [Suspect]
     Active Substance: PAZOPANIB
     Indication: Clear cell renal cell carcinoma
     Dosage: 800 MG, QD
     Route: 065
  2. PAZOPANIB [Suspect]
     Active Substance: PAZOPANIB
     Indication: Metastases to chest wall
  3. PAZOPANIB [Suspect]
     Active Substance: PAZOPANIB
     Indication: Metastases to liver
  4. PIPERACILLIN SODIUM\TAZOBACTAM SODIUM [Concomitant]
     Active Substance: PIPERACILLIN SODIUM\TAZOBACTAM SODIUM
     Indication: Enteritis infectious
     Route: 065

REACTIONS (8)
  - Acute kidney injury [Recovered/Resolved]
  - Stupor [Unknown]
  - Systemic inflammatory response syndrome [Recovered/Resolved]
  - Pyrexia [Unknown]
  - Chills [Unknown]
  - Myalgia [Unknown]
  - Productive cough [Unknown]
  - Diarrhoea [Unknown]
